FAERS Safety Report 16403381 (Version 2)
Quarter: 2019Q3

REPORT INFORMATION
  Report Type: Report from Study
  Country: CO (occurrence: CO)
  Receive Date: 20190607
  Receipt Date: 20190724
  Transmission Date: 20191004
  Serious: Yes (Hospitalization, Disabling, Other)
  Sender: FDA-Public Use
  Company Number: PHHY2018CO083249

PATIENT
  Age: 34 Year
  Sex: Female
  Weight: 48 kg

DRUGS (3)
  1. VOTRIENT [Suspect]
     Active Substance: PAZOPANIB HYDROCHLORIDE
     Indication: SOFT TISSUE SARCOMA
     Dosage: 800 MG, QD (400 MG IN MORNING AND 400 MG IN NIGHT)
     Route: 048
     Dates: start: 20180512
  2. VOTRIENT [Suspect]
     Active Substance: PAZOPANIB HYDROCHLORIDE
     Dosage: 800 MG, QD
     Route: 048
  3. VOTRIENT [Suspect]
     Active Substance: PAZOPANIB HYDROCHLORIDE
     Dosage: 800 MG, QD
     Route: 048
     Dates: start: 201805

REACTIONS (13)
  - Pleural effusion [Unknown]
  - Agitation [Unknown]
  - Back pain [Unknown]
  - Gait inability [Unknown]
  - Soft tissue sarcoma [Unknown]
  - Wrong technique in product usage process [Unknown]
  - Hypokinesia [Unknown]
  - Cough [Unknown]
  - Recurrent cancer [Unknown]
  - Vomiting [Unknown]
  - Chest pain [Unknown]
  - Metastases to spine [Unknown]
  - Drug intolerance [Unknown]

NARRATIVE: CASE EVENT DATE: 20180512
